FAERS Safety Report 4427292-7 (Version None)
Quarter: 2004Q3

REPORT INFORMATION
  Report Type: 
  Country: None (occurrence: None)
  Receive Date: 20040813
  Receipt Date: 20040813
  Transmission Date: 20050211
  Serious: Yes (Hospitalization)
  Sender: FDA-Public Use
  Company Number: None

PATIENT
  Age: 64 Year
  Sex: Male
  Weight: 70.6 kg

DRUGS (2)
  1. TRICOR [Suspect]
     Dosage: 160 MG DAILY ORAL
     Route: 048
  2. LISINOPRIL AND HYDROCHLOROTHIAZIDE [Suspect]
     Dosage: 10/12.5 MG DAILY ORAL
     Route: 048

REACTIONS (10)
  - AZOTAEMIA [None]
  - BACK PAIN [None]
  - CHEST PAIN [None]
  - DEHYDRATION [None]
  - DIALYSIS [None]
  - DYSPNOEA [None]
  - NAUSEA [None]
  - RENAL FAILURE [None]
  - RHABDOMYOLYSIS [None]
  - VOMITING [None]
